FAERS Safety Report 18027918 (Version 1)
Quarter: 2020Q3

REPORT INFORMATION
  Report Type: Spontaneous
  Country: FR (occurrence: FR)
  Receive Date: 20200715
  Receipt Date: 20200715
  Transmission Date: 20201103
  Serious: Yes (Hospitalization)
  Sender: FDA-Public Use
  Company Number: FR-ASTRAZENECA-2020SE86313

PATIENT
  Age: 26 Year
  Sex: Female

DRUGS (4)
  1. INEXIUM [Suspect]
     Active Substance: ESOMEPRAZOLE
     Indication: PRODUCT USED FOR UNKNOWN INDICATION
     Route: 048
     Dates: start: 20191206, end: 20191209
  2. AMOXICILLINE [Suspect]
     Active Substance: AMOXICILLIN
     Indication: TONSILLITIS
     Route: 048
     Dates: start: 20191204, end: 20191209
  3. IBUPROFENE [Suspect]
     Active Substance: IBUPROFEN
     Indication: TONSILLITIS
     Dosage: 400.0MG UNKNOWN
     Route: 048
     Dates: start: 20191204, end: 20191209
  4. PRIMPERAN [Suspect]
     Active Substance: METOCLOPRAMIDE HYDROCHLORIDE
     Indication: NAUSEA
     Dosage: UNKNOWN DOSE
     Route: 048
     Dates: start: 20191206, end: 20191209

REACTIONS (6)
  - Feeling hot [Recovered/Resolved]
  - Nausea [Recovered/Resolved]
  - Dysphonia [Recovered/Resolved]
  - Lip swelling [Recovered/Resolved]
  - Laryngeal oedema [Recovered/Resolved]
  - Dysphagia [Recovered/Resolved]

NARRATIVE: CASE EVENT DATE: 20191209
